FAERS Safety Report 12806800 (Version 1)
Quarter: 2016Q4

REPORT INFORMATION
  Report Type: Spontaneous
  Country: US (occurrence: US)
  Receive Date: 20161004
  Receipt Date: 20161004
  Transmission Date: 20170207
  Serious: No
  Sender: FDA-Public Use
  Company Number: US-JNJFOC-20160800083

PATIENT
  Age: 60 Year

DRUGS (2)
  1. SUDAFED [Suspect]
     Active Substance: PSEUDOEPHEDRINE HYDROCHLORIDE
     Indication: SINUS HEADACHE
     Dosage: TWO CAPLETS AT 0100 HOURS AND TWO MORE AT 0700 HOURS
     Route: 065
  2. SUDAFED [Suspect]
     Active Substance: PSEUDOEPHEDRINE HYDROCHLORIDE
     Indication: PARANASAL SINUS DISCOMFORT
     Dosage: TWO CAPLETS AT 0100 HOURS AND TWO MORE AT 0700 HOURS
     Route: 065

REACTIONS (4)
  - Drug effect incomplete [Unknown]
  - Headache [Unknown]
  - Joint stiffness [Unknown]
  - Head discomfort [Unknown]
